FAERS Safety Report 24678601 (Version 1)
Quarter: 2024Q4

REPORT INFORMATION
  Report Type: Spontaneous
  Country: ZA (occurrence: ZA)
  Receive Date: 20241129
  Receipt Date: 20241129
  Transmission Date: 20250115
  Serious: Yes (Death, Other)
  Sender: ALEXION PHARMACEUTICALS
  Company Number: ZA-AstraZeneca-CH-00756941A

PATIENT
  Age: 80 Year

DRUGS (18)
  1. DAPAGLIFLOZIN PROPANEDIOL [Suspect]
     Active Substance: DAPAGLIFLOZIN PROPANEDIOL
     Indication: Diabetes mellitus
     Dosage: 10 MILLIGRAM WITH UNKNOWN FREQUENCY
  2. DAPAGLIFLOZIN PROPANEDIOL [Suspect]
     Active Substance: DAPAGLIFLOZIN PROPANEDIOL
     Dosage: 10 MILLIGRAM WITH UNKNOWN FREQUENCY
  3. DAPAGLIFLOZIN PROPANEDIOL [Suspect]
     Active Substance: DAPAGLIFLOZIN PROPANEDIOL
     Dosage: 10 MILLIGRAM WITH UNKNOWN FREQUENCY
  4. DAPAGLIFLOZIN PROPANEDIOL [Suspect]
     Active Substance: DAPAGLIFLOZIN PROPANEDIOL
     Dosage: 10 MILLIGRAM WITH UNKNOWN FREQUENCY
  5. METFORMIN HYDROCHLORIDE [Concomitant]
     Active Substance: METFORMIN HYDROCHLORIDE
     Indication: Diabetes mellitus
     Dosage: 500 MILLIGRAM, UNKNOWN FREQUENCY
  6. METFORMIN HYDROCHLORIDE [Concomitant]
     Active Substance: METFORMIN HYDROCHLORIDE
     Dosage: 500 MILLIGRAM, UNKNOWN FREQUENCY
  7. AMLODIPINE BESYLATE\PERINDOPRIL ARGININE [Concomitant]
     Active Substance: AMLODIPINE BESYLATE\PERINDOPRIL ARGININE
     Indication: Hypertension
     Dosage: 5 MILLIGRAM WITH UNKNOWN FREQUENCY
  8. AMLODIPINE BESYLATE\PERINDOPRIL ARGININE [Concomitant]
     Active Substance: AMLODIPINE BESYLATE\PERINDOPRIL ARGININE
     Dosage: 5 MILLIGRAM WITH UNKNOWN FREQUENCY
  9. NICOTINAMIDE [Concomitant]
     Active Substance: NIACINAMIDE
     Dosage: 2.5
  10. NICOTINAMIDE [Concomitant]
     Active Substance: NIACINAMIDE
     Dosage: 2.5
  11. BISOPROLOL FUMARATE [Concomitant]
     Active Substance: BISOPROLOL FUMARATE
     Indication: Hypertension
     Dosage: 5 MILLIGRAM WITH UNKNOWN FREQUENCY
  12. BISOPROLOL FUMARATE [Concomitant]
     Active Substance: BISOPROLOL FUMARATE
     Dosage: 5 MILLIGRAM WITH UNKNOWN FREQUENCY
  13. ALEPET [Concomitant]
  14. ALEPET [Concomitant]
     Route: 065
  15. CIMETIDINE [Concomitant]
     Active Substance: CIMETIDINE
  16. CIMETIDINE [Concomitant]
     Active Substance: CIMETIDINE
  17. Azacitidine DRL [Concomitant]
  18. Azacitidine DRL [Concomitant]
     Route: 065

REACTIONS (2)
  - Death [Fatal]
  - Leukaemia [Unknown]
